FAERS Safety Report 8901225 (Version 1)
Quarter: 2012Q4

REPORT INFORMATION
  Report Type: 
  Country: JP (occurrence: JP)
  Receive Date: 20121109
  Receipt Date: 20121109
  Transmission Date: 20130627
  Serious: Yes (Hospitalization)
  Sender: FDA-Public Use
  Company Number: JP-TEVA-367653ISR

PATIENT
  Age: 56 Year
  Sex: Female

DRUGS (3)
  1. GEMCITABINE [Suspect]
     Indication: PANCREATIC CARCINOMA RECURRENT
     Route: 065
     Dates: start: 200905
  2. RANITIDINE [Concomitant]
     Route: 065
  3. ALPRAZOLAM [Concomitant]
     Route: 065

REACTIONS (4)
  - Pleural effusion [Recovered/Resolved]
  - Pericardial effusion [Recovered/Resolved]
  - Nausea [Unknown]
  - Fatigue [Unknown]
